FAERS Safety Report 10213320 (Version 1)
Quarter: 2014Q2

REPORT INFORMATION
  Report Type: Spontaneous
  Country: JP (occurrence: JP)
  Receive Date: 20140603
  Receipt Date: 20140603
  Transmission Date: 20141212
  Serious: Yes (Other)
  Sender: FDA-Public Use
  Company Number: JP-ACCORD-023978

PATIENT
  Age: 68 Year
  Sex: Male

DRUGS (4)
  1. MYCOPHENOLIC ACID [Suspect]
     Indication: RENAL TRANSPLANT
  2. TACROLIMUS [Suspect]
     Indication: RENAL TRANSPLANT
     Dosage: TACROLIMUS EXTENDED-RELEASE (TACER)
  3. BASILIXIMAB [Concomitant]
     Indication: RENAL TRANSPLANT
  4. EVEROLIMUS [Suspect]
     Indication: RENAL TRANSPLANT

REACTIONS (3)
  - Rash [Recovered/Resolved]
  - Dyspnoea [Recovered/Resolved]
  - Glomerulonephritis [Recovering/Resolving]
